FAERS Safety Report 5281889-3 (Version None)
Quarter: 2007Q1

REPORT INFORMATION
  Report Type: 
  Country: None (occurrence: None)
  Receive Date: 20070326
  Receipt Date: 20070308
  Transmission Date: 20070707
  Serious: Yes (Other)
  Sender: FDA-Public Use
  Company Number: 15703

PATIENT
  Age: 40 Year
  Sex: Male

DRUGS (1)
  1. METHOTREXATE [Suspect]
     Indication: LIP AND/OR ORAL CAVITY CANCER
     Dosage: 100 MG ONCE IV
     Route: 042

REACTIONS (8)
  - DERMATITIS BULLOUS [None]
  - HYPERSENSITIVITY [None]
  - LEUKOPENIA [None]
  - MUCOSAL INFLAMMATION [None]
  - PAIN IN EXTREMITY [None]
  - PYREXIA [None]
  - STOMATITIS [None]
  - THROMBOCYTOPENIA [None]
